FAERS Safety Report 17487570 (Version 1)
Quarter: 2020Q1

REPORT INFORMATION
  Report Type: Spontaneous
  Country: US (occurrence: US)
  Receive Date: 20200219
  Receipt Date: 20200219
  Transmission Date: 20200409
  Serious: Yes (Other)
  Sender: FDA-Public Use
  Company Number: None

PATIENT
  Age: 83 Year
  Sex: Female
  Weight: 68.04 kg

DRUGS (17)
  1. COMPOUND TRI-ESTROGEN [Concomitant]
  2. XANAX XR [Concomitant]
     Active Substance: ALPRAZOLAM
  3. FISH OIL [Concomitant]
     Active Substance: FISH OIL
  4. CALCIUM-MAGNESIUM-ZINC [Concomitant]
  5. XARELTO [Concomitant]
     Active Substance: RIVAROXABAN
  6. CEQUA [Suspect]
     Active Substance: CYCLOSPORINE
     Indication: DRY EYE
     Dosage: ?          QUANTITY:1 GTT DROP(S);OTHER ROUTE:DROPS IN L + R EYES?
     Dates: start: 202001, end: 20200115
  7. SYNTHROID [Concomitant]
     Active Substance: LEVOTHYROXINE SODIUM
  8. VITAMIN B COMPLEX [Concomitant]
     Active Substance: CYANOCOBALAMIN\DEXPANTHENOL\NIACINAMIDE\PYRIDOXINE HYDROCHLORIDE\RIBOFLAVIN 5^-PHOSPHATE SODIUM\THIAMINE HYDROCHLORIDE\VITAMIN B COMPLEX
  9. POLYETHYLEN GLYCOL 3350 [Concomitant]
  10. PREDNISONE. [Concomitant]
     Active Substance: PREDNISONE
  11. IPROTROPIUM NASAL SPRAY [Concomitant]
  12. MYRBETRIQ [Concomitant]
     Active Substance: MIRABEGRON
  13. VITAMIN D3 [Concomitant]
     Active Substance: CHOLECALCIFEROL
  14. CEQUA [Suspect]
     Active Substance: CYCLOSPORINE
     Indication: VISUAL IMPAIRMENT
     Dosage: ?          QUANTITY:1 GTT DROP(S);OTHER ROUTE:DROPS IN L + R EYES?
     Dates: start: 202001, end: 20200115
  15. CELEBREX [Concomitant]
     Active Substance: CELECOXIB
  16. ROSUVASTATIN. [Concomitant]
     Active Substance: ROSUVASTATIN
  17. VOSARTAN [Concomitant]

REACTIONS (5)
  - Nasal discomfort [None]
  - Instillation site pain [None]
  - Ear discomfort [None]
  - Headache [None]
  - Musculoskeletal discomfort [None]

NARRATIVE: CASE EVENT DATE: 20200115
